FAERS Safety Report 23663220 (Version 1)
Quarter: 2024Q1

REPORT INFORMATION
  Report Type: Spontaneous
  Country: US (occurrence: None)
  Receive Date: 20240322
  Receipt Date: 20240322
  Transmission Date: 20240410
  Serious: Yes (Hospitalization)
  Sender: FDA-Public Use
  Company Number: None

PATIENT
  Sex: Female

DRUGS (10)
  1. MYCOPHENOLATE MOFETIL [Suspect]
     Active Substance: MYCOPHENOLATE MOFETIL
     Indication: Organ transplant
     Dosage: OTHER FREQUENCY : AM+PM;?
     Route: 048
     Dates: start: 20150710
  2. SIROLIMUS [Suspect]
     Active Substance: SIROLIMUS
     Indication: Organ transplant
     Dosage: FREQUENCY : DAILY;?
     Route: 048
     Dates: start: 20150710
  3. ATENOLOL [Concomitant]
  4. CHROMIUM PIC [Concomitant]
  5. CRESTOR [Concomitant]
  6. DEMADEX [Concomitant]
  7. LEVOTHYROXIN [Concomitant]
  8. OMEGA-3-ACID CAP [Concomitant]
  9. SIROLIMUS 1MG [Concomitant]
  10. SIROLIMUS 0.5MG [Concomitant]

REACTIONS (1)
  - Infection [None]
